FAERS Safety Report 23068917 (Version 1)
Quarter: 2023Q4

REPORT INFORMATION
  Report Type: Spontaneous
  Country: US (occurrence: None)
  Receive Date: 20231013
  Receipt Date: 20231013
  Transmission Date: 20240110
  Serious: Yes (Life-Threatening)
  Sender: FDA-Public Use
  Company Number: None

PATIENT
  Age: 40 Year
  Sex: Male
  Weight: 97 kg

DRUGS (1)
  1. KEPPRA [Suspect]
     Active Substance: LEVETIRACETAM
     Indication: Epilepsy
     Dosage: FREQUENCY : DAILY;?
     Route: 048
     Dates: start: 20200122, end: 20230122

REACTIONS (4)
  - Homicidal ideation [None]
  - Therapy change [None]
  - Drug level increased [None]
  - Aggression [None]

NARRATIVE: CASE EVENT DATE: 20200122
